FAERS Safety Report 7250032-3 (Version None)
Quarter: 2011Q1

REPORT INFORMATION
  Report Type: 
  Country: None (occurrence: None)
  Receive Date: 20110128
  Receipt Date: 20101217
  Transmission Date: 20110831
  Serious: Yes (Other)
  Sender: FDA-Public Use
  Company Number: US-BAYER-201024707NA

PATIENT
  Sex: Female
  Weight: 68.299 kg

DRUGS (4)
  1. OCELLA [Suspect]
     Route: 048
  2. UNCODEABLE ^UNCLASSIFIABLE^ [Concomitant]
     Indication: WEIGHT DECREASED
  3. YAZ [Suspect]
     Indication: ORAL CONTRACEPTION
     Dosage: UNK
     Route: 048
     Dates: start: 20070514, end: 20090424
  4. YASMIN [Suspect]
     Indication: PRODUCT USED FOR UNKNOWN INDICATION
     Route: 048

REACTIONS (2)
  - WEIGHT DECREASED [None]
  - ARRHYTHMIA [None]
